FAERS Safety Report 6443962-3 (Version None)
Quarter: 2009Q4

REPORT INFORMATION
  Report Type: 
  Country: None (occurrence: None)
  Receive Date: 20091117
  Receipt Date: 20091117
  Transmission Date: 20100525
  Serious: Yes (Other)
  Sender: FDA-Public Use
  Company Number: None

PATIENT
  Age: 51 Year
  Sex: Female
  Weight: 90.7194 kg

DRUGS (1)
  1. FENTANYL-50 [Suspect]
     Indication: NEURALGIA
     Dosage: 1 PATCH EVERY 36 HOURS TRANSDERMAL
     Route: 062
     Dates: start: 20090830, end: 20091113

REACTIONS (8)
  - CONSTIPATION [None]
  - INCORRECT DOSE ADMINISTERED [None]
  - MIOSIS [None]
  - OVERDOSE [None]
  - PRODUCT QUALITY ISSUE [None]
  - PRODUCT SUBSTITUTION ISSUE [None]
  - SOMNOLENCE [None]
  - VISION BLURRED [None]
